FAERS Safety Report 7031599-7 (Version None)
Quarter: 2010Q4

REPORT INFORMATION
  Report Type: 
  Country: None (occurrence: None)
  Receive Date: 20101006
  Receipt Date: 20101006
  Transmission Date: 20110411
  Serious: No
  Sender: FDA-Public Use
  Company Number: None

PATIENT
  Sex: Male
  Weight: 43.5453 kg

DRUGS (3)
  1. LAMOTRIGINE [Suspect]
     Indication: CEREBRAL PALSY
     Dosage: ONCE QAM PO AND TWICE QHS PO 2-3 MONTHS
     Route: 048
     Dates: start: 20091101
  2. LAMOTRIGINE [Suspect]
     Indication: CONVULSION
     Dosage: ONCE QAM PO AND TWICE QHS PO 2-3 MONTHS
     Route: 048
     Dates: start: 20091101
  3. LAMICTAL [Suspect]

REACTIONS (2)
  - CONVULSION [None]
  - PRODUCT SUBSTITUTION ISSUE [None]
